FAERS Safety Report 10208939 (Version 1)
Quarter: 2014Q2

REPORT INFORMATION
  Report Type: Spontaneous
  Country: US (occurrence: US)
  Receive Date: 20140530
  Receipt Date: 20140530
  Transmission Date: 20141212
  Serious: Yes (Hospitalization)
  Sender: FDA-Public Use
  Company Number: US-B.I. PHARMACEUTICALS,INC./RIDGEFIELD-2014-BI-23697BP

PATIENT
  Age: 60 Year
  Sex: Male

DRUGS (3)
  1. COMBIVENT [Suspect]
     Indication: CHRONIC OBSTRUCTIVE PULMONARY DISEASE
     Dosage: DOSE PER APPLICATION: 18 MCG/103 MCG; DAILY DOSE: 72 MCG/412 MCG
     Route: 055
     Dates: start: 2001
  2. SPIRIVA [Concomitant]
     Indication: CHRONIC OBSTRUCTIVE PULMONARY DISEASE
     Dosage: 18 MCG
     Route: 055
     Dates: start: 2004
  3. ACITRETIN [Concomitant]
     Indication: PSORIASIS
     Dosage: 50 MG
     Route: 048

REACTIONS (1)
  - Bronchitis [Recovered/Resolved]
